FAERS Safety Report 17600993 (Version 10)
Quarter: 2022Q1

REPORT INFORMATION
  Report Type: Report from Study
  Country: NL (occurrence: NL)
  Receive Date: 20200331
  Receipt Date: 20220128
  Transmission Date: 20220423
  Serious: Yes (Hospitalization)
  Sender: FDA-Public Use
  Company Number: NL-ABBVIE-19S-114-2806229-00

PATIENT
  Age: 72 Year
  Sex: Female
  Weight: 50 kg

DRUGS (5)
  1. CARBIDOPA\LEVODOPA [Suspect]
     Active Substance: CARBIDOPA\LEVODOPA
     Indication: Parkinson^s disease
     Dosage: MORNING DOSE 6ML CONTINUOUS DOSE 1.6ML EXTRA DOSE 1.0ML?20 MG/ML 5 MG/ML
     Route: 050
     Dates: start: 20120712
  2. CARBIDOPA\LEVODOPA [Suspect]
     Active Substance: CARBIDOPA\LEVODOPA
     Dosage: MD: 6.0ML; CD: 1.7ML/H; ED: 1.0ML
     Route: 050
  3. CARBIDOPA\LEVODOPA [Suspect]
     Active Substance: CARBIDOPA\LEVODOPA
     Dosage: MD: 6.0 ML, CD: 1.4 ML/H, ED: 1.0 ML
     Route: 050
  4. POLYETHYLENE GLYCOLS [Concomitant]
     Active Substance: POLYETHYLENE GLYCOLS
     Indication: Bowel movement irregularity
  5. CARBIDOPA\LEVODOPA [Concomitant]
     Active Substance: CARBIDOPA\LEVODOPA
     Indication: Parkinson^s disease

REACTIONS (48)
  - Musculoskeletal stiffness [Not Recovered/Not Resolved]
  - Malaise [Unknown]
  - Pyrexia [Unknown]
  - Parkinson^s disease [Unknown]
  - Vomiting [Unknown]
  - Nausea [Unknown]
  - Drug ineffective [Not Recovered/Not Resolved]
  - Reduced facial expression [Not Recovered/Not Resolved]
  - Head discomfort [Not Recovered/Not Resolved]
  - Impaired quality of life [Unknown]
  - Fat tissue decreased [Not Recovered/Not Resolved]
  - Hypophagia [Unknown]
  - Muscle rigidity [Not Recovered/Not Resolved]
  - Feeling abnormal [Not Recovered/Not Resolved]
  - Gastroenteritis viral [Recovering/Resolving]
  - Abnormal dreams [Not Recovered/Not Resolved]
  - Fatigue [Not Recovered/Not Resolved]
  - Decreased appetite [Recovered/Resolved]
  - Weight decreased [Recovered/Resolved]
  - Memory impairment [Not Recovered/Not Resolved]
  - Bradyphrenia [Not Recovered/Not Resolved]
  - Speech disorder [Not Recovered/Not Resolved]
  - Gait disturbance [Not Recovered/Not Resolved]
  - Abdominal pain [Not Recovered/Not Resolved]
  - Constipation [Recovered/Resolved]
  - On and off phenomenon [Not Recovered/Not Resolved]
  - Stoma site discomfort [Recovered/Resolved]
  - Insomnia [Recovered/Resolved with Sequelae]
  - Dyskinesia [Recovered/Resolved]
  - Bradykinesia [Not Recovered/Not Resolved]
  - Dyskinesia [Recovered/Resolved]
  - Initial insomnia [Not Recovered/Not Resolved]
  - Weight increased [Recovered/Resolved]
  - Mental disorder [Not Recovered/Not Resolved]
  - Terminal insomnia [Not Recovered/Not Resolved]
  - Confusional state [Not Recovered/Not Resolved]
  - Hyperkinesia [Not Recovered/Not Resolved]
  - Fall [Not Recovered/Not Resolved]
  - Weight decreased [Not Recovered/Not Resolved]
  - Dysphagia [Not Recovered/Not Resolved]
  - Hallucination [Recovered/Resolved]
  - General physical health deterioration [Not Recovered/Not Resolved]
  - Pain [Not Recovered/Not Resolved]
  - Dyskinesia [Not Recovered/Not Resolved]
  - Sleep disorder [Not Recovered/Not Resolved]
  - Diarrhoea [Recovering/Resolving]
  - General physical condition abnormal [Not Recovered/Not Resolved]
  - Vomiting [Recovered/Resolved]

NARRATIVE: CASE EVENT DATE: 20190508
